FAERS Safety Report 14156158 (Version 4)
Quarter: 2018Q3

REPORT INFORMATION
  Report Type: Report from Study
  Country: BE (occurrence: BE)
  Receive Date: 20171103
  Receipt Date: 20180831
  Transmission Date: 20181010
  Serious: Yes (Hospitalization)
  Sender: FDA-Public Use
  Company Number: PHHO2017BE014952

PATIENT
  Age: 33 Year
  Sex: Female
  Weight: 62 kg

DRUGS (6)
  1. LETROZOLE. [Suspect]
     Active Substance: LETROZOLE
     Indication: BREAST CANCER
     Dosage: 3 MG, QD
     Route: 048
     Dates: start: 20171017
  2. ZOMETA [Concomitant]
     Active Substance: ZOLEDRONIC ACID
     Indication: METASTASES TO BONE
     Dosage: 4 MG, QW4
     Route: 048
     Dates: start: 20170826
  3. D VITAL [Concomitant]
     Active Substance: CALCIUM CARBONATE\CHOLECALCIFEROL
     Indication: METASTASES TO BONE
     Dosage: 500 MG, QD
     Route: 048
     Dates: start: 20170829
  4. LEE011 [Suspect]
     Active Substance: RIBOCICLIB
     Indication: BREAST CANCER
     Dosage: 600 MG, QD
     Route: 048
     Dates: start: 20170919
  5. LEE011 [Suspect]
     Active Substance: RIBOCICLIB
     Dosage: 600 MG, QD
     Route: 048
     Dates: start: 20171114
  6. L?THYROXINE [Concomitant]
     Active Substance: LEVOTHYROXINE
     Indication: HYPOTHYROIDISM
     Dosage: 125 UG, QD
     Route: 048
     Dates: start: 20170819

REACTIONS (1)
  - Wound complication [Recovered/Resolved]

NARRATIVE: CASE EVENT DATE: 20171017
